FAERS Safety Report 14854687 (Version 5)
Quarter: 2018Q3

REPORT INFORMATION
  Report Type: Report from Study
  Country: US (occurrence: US)
  Receive Date: 20180507
  Receipt Date: 20180905
  Transmission Date: 20181010
  Serious: Yes (Hospitalization, Other)
  Sender: FDA-Public Use
  Company Number: US-PFIZER INC-2018100422

PATIENT
  Age: 67 Year
  Sex: Male

DRUGS (2)
  1. SUTENT [Suspect]
     Active Substance: SUNITINIB MALATE
     Indication: RENAL CELL CARCINOMA
     Dosage: 50 MG, DAILY
     Route: 048
     Dates: start: 20160301
  2. SUTENT [Suspect]
     Active Substance: SUNITINIB MALATE
     Dosage: 50 MG, CYCLIC (X 28 DAYS OFF X 14 DAYS)
     Route: 048
     Dates: start: 20180301, end: 2018

REACTIONS (14)
  - Photosensitivity reaction [Unknown]
  - Red blood cell count decreased [Unknown]
  - Diarrhoea [Recovered/Resolved]
  - Fatigue [Not Recovered/Not Resolved]
  - Appetite disorder [Unknown]
  - Procedural pain [Not Recovered/Not Resolved]
  - Blood pressure increased [Recovered/Resolved]
  - Pruritus [Not Recovered/Not Resolved]
  - Abdominal pain [Unknown]
  - Nausea [Unknown]
  - Asthenia [Unknown]
  - Arthralgia [Unknown]
  - Pulmonary embolism [Not Recovered/Not Resolved]
  - Dysgeusia [Unknown]

NARRATIVE: CASE EVENT DATE: 2018
